FAERS Safety Report 10203085 (Version 3)
Quarter: 2014Q2

REPORT INFORMATION
  Report Type: Spontaneous
  Country: US (occurrence: US)
  Receive Date: 20140529
  Receipt Date: 20140613
  Transmission Date: 20141212
  Serious: Yes (Other)
  Sender: FDA-Public Use
  Company Number: US-009507513-1405USA013825

PATIENT
  Sex: 0

DRUGS (3)
  1. VICTRELIS [Suspect]
     Indication: HEPATITIS C
  2. REBETOL [Suspect]
     Indication: HEPATITIS C
  3. PEGINTERFERON ALFA-2A [Suspect]
     Indication: HEPATITIS C

REACTIONS (3)
  - Anaemia [Unknown]
  - Neutropenia [Unknown]
  - Blood creatinine increased [Unknown]
